FAERS Safety Report 7609371-6 (Version None)
Quarter: 2011Q3

REPORT INFORMATION
  Report Type: 
  Country: None (occurrence: None)
  Receive Date: 20110714
  Receipt Date: 20110708
  Transmission Date: 20111222
  Serious: Yes (Death, Other)
  Sender: FDA-Public Use
  Company Number: PHHY2011DE16448

PATIENT
  Sex: Male
  Weight: 90.249 kg

DRUGS (2)
  1. ZOMETA [Suspect]
     Indication: PROSTATE CANCER
     Dosage: 4 MG/5 ML, EVERY 4 WEEKS
     Route: 042
     Dates: start: 20080201, end: 20110201
  2. LEUPRORELIN [Concomitant]
     Indication: PROSTATE CANCER
     Dosage: 3.6 MG, Q3MO
     Route: 058

REACTIONS (6)
  - NEOPLASM PROGRESSION [None]
  - TOOTH LOSS [None]
  - METASTASES TO BONE [None]
  - SMALL INTESTINE CARCINOMA [None]
  - NEOPLASM MALIGNANT [None]
  - OSTEONECROSIS OF JAW [None]
